FAERS Safety Report 9924345 (Version 1)
Quarter: 2014Q1

REPORT INFORMATION
  Report Type: Spontaneous
  Country: DE (occurrence: DE)
  Receive Date: 20140226
  Receipt Date: 20140226
  Transmission Date: 20141002
  Serious: Yes (Hospitalization)
  Sender: FDA-Public Use
  Company Number: DE-RANBAXY-2014R1-78245

PATIENT
  Age: 57 Year
  Sex: Female

DRUGS (2)
  1. TOPIRAMATE [Suspect]
     Indication: EPILEPSY
     Dosage: 200 MG/DAY
     Route: 065
  2. TIAGABINE [Concomitant]
     Indication: EPILEPSY
     Dosage: 40 MG/DAY
     Route: 065

REACTIONS (3)
  - Mania [Recovered/Resolved]
  - Suicidal ideation [Unknown]
  - Homicidal ideation [Unknown]
